FAERS Safety Report 8478903-0 (Version None)
Quarter: 2012Q2

REPORT INFORMATION
  Report Type: 
  Country: None (occurrence: None)
  Receive Date: 20120629
  Receipt Date: 20120620
  Transmission Date: 20120825
  Serious: Yes (Hospitalization)
  Sender: FDA-Public Use
  Company Number: US-ROCHE-1080450

PATIENT
  Sex: Male
  Weight: 93.524 kg

DRUGS (8)
  1. ACTEMRA [Suspect]
     Route: 042
     Dates: start: 20111128
  2. ACTEMRA [Suspect]
     Indication: STILL'S DISEASE ADULT ONSET
     Dosage: TOTAL MONTHLY DOSE 800 MG.
     Route: 042
     Dates: start: 20110902
  3. ACTEMRA [Suspect]
     Route: 042
     Dates: start: 20111002
  4. ACTEMRA [Suspect]
     Route: 042
     Dates: start: 20111227
  5. ACTEMRA [Suspect]
     Route: 042
     Dates: start: 20111031
  6. ACTEMRA [Suspect]
     Route: 042
     Dates: start: 20110918
  7. VOLTAREN [Concomitant]
     Indication: STILL'S DISEASE ADULT ONSET
     Route: 048
  8. METHOTREXATE [Concomitant]
     Indication: STILL'S DISEASE ADULT ONSET
     Route: 048

REACTIONS (1)
  - FISTULA [None]
